FAERS Safety Report 7821104-7 (Version None)
Quarter: 2011Q4

REPORT INFORMATION
  Report Type: 
  Country: None (occurrence: None)
  Receive Date: 20111018
  Receipt Date: 20110928
  Transmission Date: 20120403
  Serious: Yes (Other)
  Sender: FDA-Public Use
  Company Number: US-PFIZER INC-2011231961

PATIENT
  Sex: Female

DRUGS (2)
  1. ZITHROMAX [Suspect]
     Dosage: 500 MG, UNK
  2. BENZOCAINE [Suspect]

REACTIONS (2)
  - NASAL OEDEMA [None]
  - SWELLING FACE [None]
